FAERS Safety Report 23306107 (Version 3)
Quarter: 2025Q2

REPORT INFORMATION
  Report Type: Report from Study
  Country: US (occurrence: US)
  Receive Date: 20231218
  Receipt Date: 20250603
  Transmission Date: 20250716
  Serious: Yes (Hospitalization, Disabling, Other)
  Sender: TAKEDA
  Company Number: US-TAKEDA-2020TUS025578

PATIENT
  Age: 77 Year
  Sex: Female

DRUGS (3)
  1. PONATINIB [Suspect]
     Active Substance: PONATINIB
     Indication: Acute lymphocytic leukaemia
     Dosage: 45 MILLIGRAM, QD
     Dates: start: 2019
  2. PONATINIB [Suspect]
     Active Substance: PONATINIB
     Dosage: 45 MILLIGRAM, QD
  3. ACYCLOVIR [Concomitant]
     Active Substance: ACYCLOVIR

REACTIONS (5)
  - Hepatic cirrhosis [Recovered/Resolved]
  - Cerebrovascular accident [Not Recovered/Not Resolved]
  - Intra-abdominal fluid collection [Unknown]
  - Product dose omission issue [Unknown]
  - Disability [Recovered/Resolved]

NARRATIVE: CASE EVENT DATE: 20221201
